FAERS Safety Report 17943470 (Version 1)
Quarter: 2020Q2

REPORT INFORMATION
  Report Type: Report from Study
  Country: NL (occurrence: NL)
  Receive Date: 20200625
  Receipt Date: 20200625
  Transmission Date: 20200714
  Serious: Yes (Other)
  Sender: FDA-Public Use
  Company Number: NL-TEVA-2019-NL-999201

PATIENT
  Age: 38 Year
  Sex: Female
  Weight: 85 kg

DRUGS (3)
  1. INFLIXIMAB INFUSIEPOEDER 100 MG [Concomitant]
     Dosage: 1X DAILY 4
  2. BUDESONIDE CAPSULE 3 MG [Concomitant]
     Dosage: 9 MILLIGRAM DAILY;
     Route: 065
  3. THIOSIX TABLETS [Suspect]
     Active Substance: THIOGUANINE ANHYDROUS
     Indication: INFLAMMATORY BOWEL DISEASE
     Dosage: 20 MILLIGRAM DAILY;
     Route: 065
     Dates: start: 20161222

REACTIONS (1)
  - Rectal haemorrhage [Recovered/Resolved]

NARRATIVE: CASE EVENT DATE: 201703
